FAERS Safety Report 7935679-0 (Version None)
Quarter: 2011Q4

REPORT INFORMATION
  Report Type: 
  Country: None (occurrence: None)
  Receive Date: 20111123
  Receipt Date: 20111111
  Transmission Date: 20120403
  Serious: Yes (Congenital Anomaly)
  Sender: FDA-Public Use
  Company Number: DE-RANBAXY-2011RR-48972

PATIENT

DRUGS (6)
  1. CYCLOSPORINE [Suspect]
     Dosage: 150 MG, BID
     Route: 064
     Dates: start: 20091031, end: 20110131
  2. ENOXAPARIN SODIUM [Concomitant]
     Dosage: 140 MG/ DAY, GW 10.5 - 13.1
     Route: 064
     Dates: start: 20110114, end: 20110131
  3. RAMIPRIL [Suspect]
     Dosage: 5 MG/ DAY, GW 0 - 12.3
     Route: 064
     Dates: start: 20101031, end: 20110126
  4. TORSEMIDE [Suspect]
     Dosage: 10 MG/ DAY, GW 0 - 12.3
     Route: 064
     Dates: start: 20101031, end: 20110126
  5. FALITHROM [Suspect]
     Dosage: 3 MG, BID
     Route: 064
     Dates: start: 20091031, end: 20110113
  6. PREDNISOLONE [Concomitant]
     Dosage: 7.5 MG/ DAY
     Route: 064
     Dates: start: 20091031, end: 20110131

REACTIONS (1)
  - FALLOT'S TETRALOGY [None]
